FAERS Safety Report 4575782-9 (Version None)
Quarter: 2005Q1

REPORT INFORMATION
  Report Type: 
  Country: None (occurrence: None)
  Receive Date: 20050204
  Receipt Date: 20041207
  Transmission Date: 20050727
  Serious: Yes (Hospitalization)
  Sender: FDA-Public Use
  Company Number: 2004093640

PATIENT
  Age: 67 Year
  Sex: Male

DRUGS (2)
  1. SIMVASTATIN [Suspect]
     Indication: ILL-DEFINED DISORDER
  2. ERYTHROMYCIN [Suspect]
     Indication: PERTUSSIS

REACTIONS (1)
  - RENAL FAILURE [None]
